FAERS Safety Report 4947008-5 (Version None)
Quarter: 2006Q1

REPORT INFORMATION
  Report Type: 
  Country: None (occurrence: None)
  Receive Date: 20060317
  Receipt Date: 20060307
  Transmission Date: 20060701
  Serious: Yes (Other)
  Sender: FDA-Public Use
  Company Number: US-ROCHE-439637

PATIENT
  Age: 49 Year
  Sex: Male

DRUGS (7)
  1. PEGASYS [Suspect]
     Indication: HEPATITIS C
     Route: 058
     Dates: start: 20040615
  2. PEGASYS [Suspect]
     Route: 058
     Dates: start: 20050315, end: 20050915
  3. RIBAVIRIN [Suspect]
     Indication: HEPATITIS C
     Route: 048
     Dates: start: 20040615
  4. RIBAVIRIN [Suspect]
     Route: 048
     Dates: start: 20050315, end: 20050915
  5. SLEEPING PILL NOS [Concomitant]
     Indication: SLEEP DISORDER THERAPY
     Route: 048
  6. CELEBREX [Concomitant]
     Route: 048
  7. LEVAQUIN [Concomitant]
     Route: 048

REACTIONS (5)
  - DRUG INEFFECTIVE [None]
  - FATIGUE [None]
  - NAUSEA [None]
  - PNEUMONIA LEGIONELLA [None]
  - THERAPY NON-RESPONDER [None]
